FAERS Safety Report 4766266-3 (Version None)
Quarter: 2005Q3

REPORT INFORMATION
  Report Type: 
  Country: None (occurrence: None)
  Receive Date: 20050906
  Receipt Date: 20050822
  Transmission Date: 20060218
  Serious: Yes (Other)
  Sender: FDA-Public Use
  Company Number: USA0508106112

PATIENT
  Sex: Male

DRUGS (1)
  1. FORTEO [Suspect]

REACTIONS (4)
  - METASTASES TO BONE [None]
  - MUSCLE SPASMS [None]
  - PAIN IN EXTREMITY [None]
  - PROSTATE CANCER [None]
